FAERS Safety Report 9395889 (Version 2)
Quarter: 2013Q3

REPORT INFORMATION
  Report Type: Spontaneous
  Country: FR (occurrence: FR)
  Receive Date: 20130711
  Receipt Date: 20130802
  Transmission Date: 20140515
  Serious: Yes (Other)
  Sender: FDA-Public Use
  Company Number: FR-GLAXOSMITHKLINE-B0905776A

PATIENT
  Age: 92 Year
  Sex: Male

DRUGS (11)
  1. AUGMENTIN IV [Suspect]
     Indication: LOBAR PNEUMONIA
     Dosage: 2G THREE TIMES PER DAY
     Route: 042
     Dates: start: 20130604, end: 20130612
  2. BECOTIDE [Suspect]
     Indication: PRODUCT USED FOR UNKNOWN INDICATION
     Route: 055
  3. PRAVASTATINE [Suspect]
     Indication: DYSLIPIDAEMIA
     Dosage: 1UNIT PER DAY
     Route: 048
  4. CLOPIDOGREL [Suspect]
     Indication: PRODUCT USED FOR UNKNOWN INDICATION
     Dosage: 1UNIT PER DAY
     Route: 048
  5. NAFTIDROFURYL [Suspect]
     Indication: INTERMITTENT CLAUDICATION
     Dosage: 1TAB THREE TIMES PER DAY
     Route: 048
  6. MIANSERINE [Suspect]
     Indication: MAJOR DEPRESSION
     Route: 048
  7. PARACETAMOL [Suspect]
     Indication: PRODUCT USED FOR UNKNOWN INDICATION
     Route: 048
  8. CACIT D3 [Concomitant]
     Route: 048
  9. MACROGOL [Concomitant]
     Route: 048
  10. ROCEPHINE [Concomitant]
     Indication: LOBAR PNEUMONIA
     Route: 065
     Dates: start: 20130604, end: 20130604
  11. FLAGYL [Concomitant]
     Indication: LOBAR PNEUMONIA
     Route: 065
     Dates: start: 20130604, end: 20130604

REACTIONS (1)
  - Hepatitis acute [Recovered/Resolved]
